FAERS Safety Report 25346281 (Version 1)
Quarter: 2025Q2

REPORT INFORMATION
  Report Type: Spontaneous
  Country: AU (occurrence: AU)
  Receive Date: 20250522
  Receipt Date: 20250522
  Transmission Date: 20250716
  Serious: Yes (Hospitalization)
  Sender: SANDOZ
  Company Number: AU-ASTRAZENECA-202504GLO016544AU

PATIENT
  Age: 67 Year
  Sex: Female

DRUGS (14)
  1. ANASTROZOLE [Suspect]
     Active Substance: ANASTROZOLE
     Route: 048
     Dates: start: 20240716
  2. ANASTROZOLE [Suspect]
     Active Substance: ANASTROZOLE
     Indication: Breast cancer
     Route: 048
     Dates: start: 20241015, end: 20250115
  3. ABEMACICLIB [Suspect]
     Active Substance: ABEMACICLIB
     Indication: Breast cancer
     Route: 048
     Dates: start: 20250115, end: 20250129
  4. ABEMACICLIB [Suspect]
     Active Substance: ABEMACICLIB
     Route: 048
     Dates: start: 20250130
  5. ABEMACICLIB [Suspect]
     Active Substance: ABEMACICLIB
     Route: 048
     Dates: start: 20240716, end: 20250114
  6. CAMIZESTRANT [Suspect]
     Active Substance: CAMIZESTRANT
     Indication: Product used for unknown indication
     Route: 065
  7. AMLODIPINE [Concomitant]
     Active Substance: AMLODIPINE BESYLATE
     Indication: Hypertension
     Dosage: 10 MG, QD
     Route: 048
     Dates: start: 20180115, end: 20241220
  8. CANDESARTAN CILEXETIL [Concomitant]
     Active Substance: CANDESARTAN CILEXETIL
     Indication: Hypertension
     Dosage: 32 MG, QD
     Route: 048
     Dates: start: 20180115
  9. LOPERAMIDE HYDROCHLORIDE [Concomitant]
     Active Substance: LOPERAMIDE HYDROCHLORIDE
     Indication: Diarrhoea
     Route: 048
     Dates: start: 20240716
  10. LORATADINE [Concomitant]
     Active Substance: LORATADINE
     Indication: Rash pruritic
     Route: 048
     Dates: start: 20240716
  11. PREDNISONE [Concomitant]
     Active Substance: PREDNISONE
     Indication: Pneumonitis
     Dosage: 50 MG, QD
     Route: 048
     Dates: start: 20250207
  12. PREGABALIN [Concomitant]
     Active Substance: PREGABALIN
     Indication: Neuropathy peripheral
     Dosage: 150 MG, QD
     Route: 048
     Dates: start: 20240903
  13. ALBUTEROL SULFATE [Concomitant]
     Active Substance: ALBUTEROL SULFATE
     Indication: Asthma
     Route: 055
     Dates: start: 20220803
  14. ZOLEDRONIC ACID [Concomitant]
     Active Substance: ZOLEDRONIC ACID
     Indication: Breast cancer
     Route: 042
     Dates: start: 20240119

REACTIONS (1)
  - Cystitis [Recovered/Resolved]

NARRATIVE: CASE EVENT DATE: 20250410
